FAERS Safety Report 12105316 (Version 6)
Quarter: 2016Q3

REPORT INFORMATION
  Report Type: Report from Study
  Country: US (occurrence: AU)
  Receive Date: 20160223
  Receipt Date: 20160810
  Transmission Date: 20161109
  Serious: Yes (Death, Hospitalization, Other)
  Sender: FDA-Public Use
  Company Number: AU-KADMON PHARMACEUTICALS, LLC-KAD201602-000648

PATIENT
  Age: 64 Year
  Sex: Female

DRUGS (12)
  1. METFORMIN [Concomitant]
     Active Substance: METFORMIN HYDROCHLORIDE
  2. RIBAVIRIN 200 MG [Suspect]
     Active Substance: RIBAVIRIN
     Indication: HEPATITIS C
     Route: 048
     Dates: start: 20160202, end: 20160209
  3. METOCLOPRAMIDE HYDROCHLORIDE. [Concomitant]
     Active Substance: METOCLOPRAMIDE HYDROCHLORIDE
  4. ESOMEPRAZOLE MAGNESIUM. [Concomitant]
     Active Substance: ESOMEPRAZOLE MAGNESIUM
  5. VIEKIRA PAK [Suspect]
     Active Substance: DASABUVIR\OMBITASVIR\PARITAPREVIR\RITONAVIR
     Indication: HEPATITIS C
     Dosage: AV1 X2 IN MORNING, AV2 X 1, 2 TIMES A DAY; TABLET
     Route: 048
     Dates: start: 20160202, end: 20160209
  6. PREGABALIN. [Concomitant]
     Active Substance: PREGABALIN
  7. TEMAZEPAM. [Concomitant]
     Active Substance: TEMAZEPAM
  8. GLICLAZIDE [Concomitant]
     Active Substance: GLICLAZIDE
  9. VIEKIRA PAK [Suspect]
     Active Substance: DASABUVIR\OMBITASVIR\PARITAPREVIR\RITONAVIR
     Indication: HEPATIC CIRRHOSIS
  10. TEMAZEPAM. [Concomitant]
     Active Substance: TEMAZEPAM
  11. RIBAVIRIN 200 MG [Suspect]
     Active Substance: RIBAVIRIN
     Indication: HEPATIC CIRRHOSIS
  12. PROPRANOLOL [Concomitant]
     Active Substance: PROPRANOLOL\PROPRANOLOL HYDROCHLORIDE

REACTIONS (7)
  - Hepatic failure [Unknown]
  - Blood bilirubin increased [Unknown]
  - Disease progression [Unknown]
  - Jaundice [Unknown]
  - Nausea [Unknown]
  - Sepsis [Fatal]
  - Dizziness [Unknown]

NARRATIVE: CASE EVENT DATE: 20160207
